FAERS Safety Report 23271406 (Version 1)
Quarter: 2023Q4

REPORT INFORMATION
  Report Type: Report from Study
  Country: IL (occurrence: IL)
  Receive Date: 20231207
  Receipt Date: 20231207
  Transmission Date: 20240110
  Serious: Yes (Other)
  Sender: FDA-Public Use
  Company Number: IL-TAKEDA-2023TUS115638

PATIENT
  Age: 49 Year
  Sex: Male

DRUGS (2)
  1. VELAGLUCERASE ALFA [Suspect]
     Active Substance: VELAGLUCERASE ALFA
     Indication: Gaucher^s disease
     Dosage: 2000 INTERNATIONAL UNIT, Q2WEEKS
     Route: 065
  2. VELAGLUCERASE ALFA [Suspect]
     Active Substance: VELAGLUCERASE ALFA
     Dosage: 4000 INTERNATIONAL UNIT, MONTHLY
     Route: 065

REACTIONS (5)
  - Nephrolithiasis [Unknown]
  - Flank pain [Recovered/Resolved]
  - Dysuria [Unknown]
  - Inguinal hernia [Unknown]
  - Hepatomegaly [Unknown]
